FAERS Safety Report 12892273 (Version 10)
Quarter: 2017Q2

REPORT INFORMATION
  Report Type: Spontaneous
  Country: US (occurrence: US)
  Receive Date: 20161028
  Receipt Date: 20170614
  Transmission Date: 20170830
  Serious: Yes (Death, Hospitalization, Congenital Anomaly, Other)
  Sender: FDA-Public Use
  Company Number: PHEH2016US027997

PATIENT
  Sex: Male

DRUGS (4)
  1. ZOFRAN [Suspect]
     Active Substance: ONDANSETRON HYDROCHLORIDE
     Indication: FOETAL EXPOSURE DURING PREGNANCY
     Dosage: MOTHER^S DOSE: 1 DF, PRN
     Route: 064
  2. ONDANSETRON [Suspect]
     Active Substance: ONDANSETRON
     Indication: FOETAL EXPOSURE DURING PREGNANCY
     Route: 064
  3. ONDANSETRON [Suspect]
     Active Substance: ONDANSETRON
     Indication: FOETAL EXPOSURE DURING PREGNANCY
     Route: 064
  4. ZOFRAN ODT [Suspect]
     Active Substance: ONDANSETRON HYDROCHLORIDE
     Indication: FOETAL EXPOSURE DURING PREGNANCY
     Route: 064

REACTIONS (34)
  - Oliguria [Unknown]
  - Pain [Unknown]
  - Anhedonia [Unknown]
  - Death neonatal [Fatal]
  - Atrial septal defect [Unknown]
  - Malnutrition [Unknown]
  - Leukopenia neonatal [Unknown]
  - Right atrial dilatation [Unknown]
  - Metabolic acidosis [Unknown]
  - Coagulopathy [Unknown]
  - Coarctation of the aorta [Unknown]
  - Congenital anomaly [Unknown]
  - Foetal growth restriction [Unknown]
  - Neonatal hypotension [Unknown]
  - Bradyarrhythmia [Unknown]
  - Emotional distress [Unknown]
  - Hyperbilirubinaemia neonatal [Unknown]
  - Systolic dysfunction [Unknown]
  - Mitral valve incompetence [Unknown]
  - Cardiac murmur [Unknown]
  - Hypospadias [Unknown]
  - Anaemia neonatal [Unknown]
  - Patent ductus arteriosus [Unknown]
  - Heart disease congenital [Unknown]
  - Adrenal insufficiency neonatal [Unknown]
  - Neonatal respiratory failure [Unknown]
  - Foetal exposure during pregnancy [Unknown]
  - Aortic valve incompetence [Unknown]
  - Neonatal respiratory distress syndrome [Unknown]
  - Premature baby [Unknown]
  - Right ventricular dilatation [Unknown]
  - Tricuspid valve incompetence [Unknown]
  - Anxiety [Unknown]
  - Hyperkalaemia [Unknown]

NARRATIVE: CASE EVENT DATE: 20140224
